FAERS Safety Report 7639193-1 (Version None)
Quarter: 2011Q3

REPORT INFORMATION
  Report Type: 
  Country: None (occurrence: None)
  Receive Date: 20110721
  Receipt Date: 20110706
  Transmission Date: 20111222
  Serious: Yes (Hospitalization, Other)
  Sender: FDA-Public Use
  Company Number: AUR-APL-2011-04129

PATIENT
  Age: 67 Year
  Sex: Male

DRUGS (14)
  1. SPIRIVA [Suspect]
     Indication: CHRONIC OBSTRUCTIVE PULMONARY DISEASE
     Dosage: (36 MCG), INHALATION
     Route: 055
     Dates: start: 20100916
  2. COUMADIN [Concomitant]
  3. WELCHOL [Concomitant]
  4. VITAMIN D [Concomitant]
  5. ARICEPT [Concomitant]
  6. CRESTOR [Concomitant]
  7. NEXIUM (ESCOMEPRAZOLE MAGNESIUM) [Concomitant]
  8. PLAVIX [Concomitant]
  9. NOVOLOG [Concomitant]
  10. METOPROLOL TARTRATE [Suspect]
     Indication: PRODUCT USED FOR UNKNOWN INDICATION
     Dosage: (50 MG)
  11. DRONEDARONE HCL [Suspect]
     Indication: PRODUCT USED FOR UNKNOWN INDICATION
     Dosage: (400 MG), ORAL
     Route: 048
  12. SYNTHROID [Concomitant]
  13. LEXAPRO [Concomitant]
  14. ULTRAM [Concomitant]

REACTIONS (3)
  - RESPIRATORY DISORDER [None]
  - BRADYCARDIA [None]
  - OXYGEN SATURATION DECREASED [None]
